FAERS Safety Report 4457025-X (Version None)
Quarter: 2004Q3

REPORT INFORMATION
  Report Type: 
  Country: None (occurrence: None)
  Receive Date: 20040923
  Receipt Date: 20040917
  Transmission Date: 20050211
  Serious: Yes (Other)
  Sender: FDA-Public Use
  Company Number: GB-GLAXOSMITHKLINE-B0345694A

PATIENT
  Age: 26 Year
  Sex: Male
  Weight: 50 kg

DRUGS (3)
  1. ZYBAN [Suspect]
     Dosage: 150MG PER DAY
     Route: 048
     Dates: start: 20040811, end: 20040814
  2. ALBUTEROL [Concomitant]
     Indication: ASTHMA
     Dosage: 100MCG PER DAY
     Dates: start: 20020124
  3. SERETIDE [Concomitant]
     Indication: ASTHMA
     Dosage: 250MCG PER DAY

REACTIONS (2)
  - ASTHMA [None]
  - WHEEZING [None]
